FAERS Safety Report 8879176 (Version 2)
Quarter: 2012Q4

REPORT INFORMATION
  Report Type: 
  Country: US (occurrence: None)
  Receive Date: 20121102
  Receipt Date: 20121114
  Transmission Date: 20130627
  Serious: Yes (Hospitalization)
  Sender: FDA-Public Use
  Company Number: None

PATIENT
  Age: 65 Year
  Sex: Male
  Weight: 105.5 kg

DRUGS (1)
  1. TESTOSTERONE CYPIONATE [Suspect]
     Route: 030
     Dates: start: 20120809, end: 20121026

REACTIONS (4)
  - Convulsion [None]
  - Meningitis [None]
  - Electroencephalogram abnormal [None]
  - Encephalitis viral [None]
